FAERS Safety Report 11622403 (Version 1)
Quarter: 2015Q4

REPORT INFORMATION
  Report Type: Spontaneous
  Country: US (occurrence: US)
  Receive Date: 20151013
  Receipt Date: 20151013
  Transmission Date: 20160304
  Serious: No
  Sender: FDA-Public Use
  Company Number: US-JNJFOC-20150104927

PATIENT
  Age: 32 Year
  Sex: Male
  Weight: 127.01 kg

DRUGS (4)
  1. TYLENOL ARTHRITIS PAIN [Suspect]
     Active Substance: ACETAMINOPHEN
     Indication: ARTHRITIS
     Route: 048
     Dates: start: 20050114
  2. TYLENOL COLD MULTI-SYMPTOM [Suspect]
     Active Substance: ACETAMINOPHEN\DEXTROMETHORPHAN HYDROBROMIDE\DOXYLAMINE SUCCINATE\PHENYLEPHRINE
     Indication: ARTHRITIS
     Dosage: 2 TEASPOON
     Route: 048
     Dates: start: 20050114
  3. TYLENOL ARTHRITIS PAIN [Suspect]
     Active Substance: ACETAMINOPHEN
     Indication: PAIN
     Route: 048
     Dates: start: 20050114
  4. TYLENOL COLD MULTI-SYMPTOM [Suspect]
     Active Substance: ACETAMINOPHEN\DEXTROMETHORPHAN HYDROBROMIDE\DOXYLAMINE SUCCINATE\PHENYLEPHRINE
     Indication: PAIN
     Dosage: 2 TEASPOON
     Route: 048
     Dates: start: 20050114

REACTIONS (2)
  - Product use issue [Unknown]
  - Drug administration error [Unknown]
